FAERS Safety Report 5280838-1 (Version None)
Quarter: 2007Q1

REPORT INFORMATION
  Report Type: 
  Country: None (occurrence: None)
  Receive Date: 20070329
  Receipt Date: 20070321
  Transmission Date: 20070707
  Serious: Yes (Hospitalization)
  Sender: FDA-Public Use
  Company Number: IT-PFIZER INC-2007022929

PATIENT
  Sex: Female

DRUGS (1)
  1. ZOLOFT [Suspect]
     Indication: DEPRESSION
     Route: 048
     Dates: start: 20070307, end: 20070307

REACTIONS (5)
  - FACE OEDEMA [None]
  - PARAESTHESIA [None]
  - TACHYCARDIA [None]
  - TONGUE OEDEMA [None]
  - TRISMUS [None]
